FAERS Safety Report 24106893 (Version 2)
Quarter: 2024Q3

REPORT INFORMATION
  Report Type: Spontaneous
  Country: US (occurrence: US)
  Receive Date: 20240717
  Receipt Date: 20240723
  Transmission Date: 20241016
  Serious: Yes (Other)
  Sender: ABBVIE
  Company Number: US-ABBVIE-5841765

PATIENT
  Age: 56 Year
  Sex: Female

DRUGS (1)
  1. VUITY [Suspect]
     Active Substance: PILOCARPINE HYDROCHLORIDE
     Indication: Presbyopia
     Dosage: LEFT EYE
     Route: 050
     Dates: start: 202206

REACTIONS (8)
  - Blindness unilateral [Unknown]
  - Product design issue [Unknown]
  - Impaired quality of life [Unknown]
  - Retinal detachment [Unknown]
  - Photophobia [Unknown]
  - Anhedonia [Unknown]
  - Anxiety [Unknown]
  - Pain [Unknown]

NARRATIVE: CASE EVENT DATE: 20220801
